FAERS Safety Report 19361623 (Version 1)
Quarter: 2021Q2

REPORT INFORMATION
  Report Type: Spontaneous
  Country: DE (occurrence: DE)
  Receive Date: 20210601
  Receipt Date: 20210601
  Transmission Date: 20210717
  Serious: Yes (Hospitalization, Other)
  Sender: FDA-Public Use
  Company Number: DE-OXFORD PHARMACEUTICALS, LLC-2112189

PATIENT
  Age: 72 Year
  Sex: Male

DRUGS (1)
  1. SPIRONOLACTONE TABLETS, 25MG, 50MG, 100MG [Suspect]
     Active Substance: SPIRONOLACTONE
     Indication: PRODUCT USED FOR UNKNOWN INDICATION

REACTIONS (2)
  - Double hit lymphoma [Unknown]
  - Gynaecomastia [Unknown]
